FAERS Safety Report 8755878 (Version 1)
Quarter: 2012Q4

REPORT INFORMATION
  Report Type: Report from Study
  Country: SI (occurrence: SI)
  Receive Date: 20120828
  Receipt Date: 20120828
  Transmission Date: 20130627
  Serious: Yes (Other)
  Sender: FDA-Public Use
  Company Number: SI-ROCHE-GNE319385

PATIENT
  Sex: Female

DRUGS (3)
  1. RANIBIZUMAB [Suspect]
     Indication: AGE-RELATED MACULAR DEGENERATION
     Dosage: UNK
     Route: 050
     Dates: start: 20101121
  2. RANIBIZUMAB [Suspect]
     Dates: start: 20101220
  3. RANIBIZUMAB [Suspect]
     Dates: start: 20110117

REACTIONS (3)
  - Visual acuity reduced [Unknown]
  - Intraocular pressure increased [Unknown]
  - Drug ineffective [Unknown]
